FAERS Safety Report 4842972-7 (Version None)
Quarter: 2005Q4

REPORT INFORMATION
  Report Type: 
  Country: None (occurrence: None)
  Receive Date: 20051130
  Receipt Date: 20051122
  Transmission Date: 20060501
  Serious: Yes (Death, Disabling)
  Sender: FDA-Public Use
  Company Number: NUBN20050022

PATIENT
  Age: 0 Day
  Weight: 4.13 kg

DRUGS (1)
  1. NUBAIN [Suspect]
     Dosage: 4 MG  ONCE TRANSPL.
     Route: 064

REACTIONS (3)
  - DRUG EXPOSURE DURING PREGNANCY [None]
  - FORCEPS DELIVERY [None]
  - TRAUMATIC BRAIN INJURY [None]
